FAERS Safety Report 20405520 (Version 1)
Quarter: 2022Q1

REPORT INFORMATION
  Report Type: Spontaneous
  Country: GB (occurrence: None)
  Receive Date: 20220129
  Receipt Date: 20220129
  Transmission Date: 20220423
  Serious: Yes (Disabling, Other)
  Sender: FDA-Public Use
  Company Number: None

PATIENT
  Age: 69 Year
  Sex: Female
  Weight: 67.5 kg

DRUGS (2)
  1. REXULTI [Suspect]
     Active Substance: BREXPIPRAZOLE
     Indication: Bipolar disorder
     Dosage: OTHER QUANTITY : 1 TABLET(S);?FREQUENCY : AT BEDTIME;?
     Route: 048
     Dates: start: 20170412, end: 20190531
  2. ZIPRASIDONE [Suspect]
     Active Substance: ZIPRASIDONE
     Indication: Bipolar disorder
     Dosage: OTHER QUANTITY : 1 TABLET(S);?FREQUENCY : AT BEDTIME;?
     Route: 048
     Dates: start: 20170412, end: 20190531

REACTIONS (10)
  - Fatigue [None]
  - Loss of employment [None]
  - Asthenia [None]
  - Loss of personal independence in daily activities [None]
  - Cognitive disorder [None]
  - Disturbance in attention [None]
  - Cerebral disorder [None]
  - Metabolic disorder [None]
  - Impaired quality of life [None]
  - Product use in unapproved indication [None]
